FAERS Safety Report 14164904 (Version 1)
Quarter: 2017Q4

REPORT INFORMATION
  Report Type: Spontaneous
  Country: MX (occurrence: MX)
  Receive Date: 20171107
  Receipt Date: 20171107
  Transmission Date: 20180321
  Serious: Yes (Other)
  Sender: FDA-Public Use
  Company Number: MX-PFIZER INC-2017477234

PATIENT
  Age: 85 Year
  Sex: Female

DRUGS (3)
  1. PRISTIQ EXTENDED-RELEASE [Suspect]
     Active Substance: DESVENLAFAXINE SUCCINATE
     Dosage: 50 MG, UNK
  2. VARTALON COMPOSITUM [Concomitant]
     Dosage: UNK
  3. EXELON PATCH [Concomitant]
     Active Substance: RIVASTIGMINE
     Dosage: UNK

REACTIONS (1)
  - Senile dementia [Not Recovered/Not Resolved]
